FAERS Safety Report 5768243-2 (Version None)
Quarter: 2008Q2

REPORT INFORMATION
  Report Type: 
  Country: None (occurrence: None)
  Receive Date: 20080609
  Receipt Date: 20080528
  Transmission Date: 20081010
  Serious: Yes (Hospitalization)
  Sender: FDA-Public Use
  Company Number: B0523772A

PATIENT
  Age: 56 Year
  Sex: Female

DRUGS (4)
  1. THIOGUANINE [Suspect]
     Indication: INFLAMMATORY BOWEL DISEASE
     Dosage: 40MG / PER DAY
     Dates: start: 20020801
  2. AZATHIOPRINE [Suspect]
     Indication: INFLAMMATORY BOWEL DISEASE
  3. INFLIXIMAB (FORMULATION UNKNOWN) (INFLIXIMAB) [Suspect]
     Indication: INFLAMMATORY BOWEL DISEASE
     Dosage: INTRAVENOUS INFUSION
  4. PREDNISONE TAB [Concomitant]

REACTIONS (12)
  - ANAEMIA [None]
  - ASCITES [None]
  - COLITIS ULCERATIVE [None]
  - HAEMATEMESIS [None]
  - HYPOALBUMINAEMIA [None]
  - LEUKOPENIA [None]
  - MALNUTRITION [None]
  - NODULAR REGENERATIVE HYPERPLASIA [None]
  - OEDEMA PERIPHERAL [None]
  - OESOPHAGEAL VARICES HAEMORRHAGE [None]
  - PLEURAL EFFUSION [None]
  - WEIGHT INCREASED [None]
